FAERS Safety Report 6168956-7 (Version None)
Quarter: 2009Q2

REPORT INFORMATION
  Report Type: 
  Country: None (occurrence: None)
  Receive Date: 20090427
  Receipt Date: 20090423
  Transmission Date: 20091009
  Serious: No
  Sender: FDA-Public Use
  Company Number: US-B.I. PHARMACEUTICALS,INC./RIDGEFIELD-2009-BP-03532BP

PATIENT
  Age: 87 Year
  Sex: Male

DRUGS (10)
  1. FLOMAX [Suspect]
     Indication: BENIGN PROSTATIC HYPERPLASIA
     Dosage: .4MG
     Route: 048
     Dates: start: 20081201
  2. FLOMAX [Suspect]
     Indication: POLLAKIURIA
  3. FLOMAX [Suspect]
     Indication: PROSTATOMEGALY
  4. HYDROCHLOROTHIAZIDE [Concomitant]
     Indication: CARDIAC DISORDER
  5. POTASSIUM CHLORIDE [Concomitant]
     Indication: CARDIAC DISORDER
  6. AMLODIPINE BESYLATE [Concomitant]
     Indication: HYPERTENSION
  7. PILL FOR CLOGGED ARTERY [Concomitant]
     Indication: CORONARY ARTERY DISEASE
  8. POTASSIUM CHLORIDE [Concomitant]
  9. DIOVAN [Concomitant]
  10. ASPIRIN [Concomitant]

REACTIONS (1)
  - DRUG INEFFECTIVE [None]
